FAERS Safety Report 14694061 (Version 3)
Quarter: 2018Q3

REPORT INFORMATION
  Report Type: Spontaneous
  Country: FR (occurrence: FR)
  Receive Date: 20180329
  Receipt Date: 20180716
  Transmission Date: 20181010
  Serious: Yes (Other)
  Sender: FDA-Public Use
  Company Number: PHHY2018FR047317

PATIENT
  Age: 35 Year
  Sex: Female

DRUGS (4)
  1. PREDNISONE. [Suspect]
     Active Substance: PREDNISONE
     Indication: ANTINUCLEAR ANTIBODY POSITIVE
  2. HYDROXYCHLOROQUINE [Suspect]
     Active Substance: HYDROXYCHLOROQUINE
     Indication: ANTINUCLEAR ANTIBODY POSITIVE
  3. PREDNISONE. [Suspect]
     Active Substance: PREDNISONE
     Indication: INFERTILITY
     Dosage: 15 MG, QD
     Route: 065
  4. HYDROXYCHLOROQUINE [Suspect]
     Active Substance: HYDROXYCHLOROQUINE
     Indication: INFERTILITY
     Dosage: 400 MG, QD
     Route: 065

REACTIONS (2)
  - Maternal exposure during pregnancy [Unknown]
  - Missed labour [Unknown]
